FAERS Safety Report 12559175 (Version 1)
Quarter: 2016Q3

REPORT INFORMATION
  Report Type: Spontaneous
  Country: US (occurrence: US)
  Receive Date: 20160715
  Receipt Date: 20160715
  Transmission Date: 20161109
  Serious: No
  Sender: FDA-Public Use
  Company Number: US-TEVA-662471USA

PATIENT
  Age: 28 Year
  Sex: Female
  Weight: 79 kg

DRUGS (2)
  1. ZECUITY [Suspect]
     Active Substance: SUMATRIPTAN SUCCINATE
     Indication: MIGRAINE
  2. ZECUITY [Suspect]
     Active Substance: SUMATRIPTAN SUCCINATE
     Indication: HEADACHE
     Route: 062
     Dates: start: 20160520, end: 20160520

REACTIONS (9)
  - Application site paraesthesia [Unknown]
  - Application site inflammation [Unknown]
  - Wrong technique in product usage process [Unknown]
  - Product adhesion issue [Unknown]
  - Application site rash [Not Recovered/Not Resolved]
  - Application site bruise [Unknown]
  - Application site pruritus [Not Recovered/Not Resolved]
  - Product leakage [Unknown]
  - Application site pain [Unknown]

NARRATIVE: CASE EVENT DATE: 20160520
